FAERS Safety Report 24246163 (Version 1)
Quarter: 2024Q3

REPORT INFORMATION
  Report Type: Spontaneous
  Country: US (occurrence: US)
  Receive Date: 20240824
  Receipt Date: 20240824
  Transmission Date: 20241017
  Serious: Yes (Other)
  Sender: AMGEN
  Company Number: US-AMGEN-USASP2024164787

PATIENT

DRUGS (1)
  1. PREDNISONE [Suspect]
     Active Substance: PREDNISONE
     Indication: Giant cell arteritis
     Dosage: UNK (LOW DOSE)
     Route: 065

REACTIONS (4)
  - Blindness [Unknown]
  - Giant cell arteritis [Unknown]
  - Drug effective for unapproved indication [Unknown]
  - Off label use [Unknown]
